FAERS Safety Report 16863621 (Version 5)
Quarter: 2020Q2

REPORT INFORMATION
  Report Type: Report from Study
  Country: KR (occurrence: KR)
  Receive Date: 20190927
  Receipt Date: 20200622
  Transmission Date: 20200713
  Serious: Yes (Death, Hospitalization)
  Sender: FDA-Public Use
  Company Number: KR-CELGENEUS-KOR-20190900661

PATIENT
  Age: 69 Year
  Sex: Male
  Weight: 78 kg

DRUGS (33)
  1. POMALIDOMIDE [Suspect]
     Active Substance: POMALIDOMIDE
     Indication: PLASMA CELL MYELOMA
     Route: 048
     Dates: start: 20190801, end: 20190903
  2. DEXAMETHASONE. [Suspect]
     Active Substance: DEXAMETHASONE
     Route: 048
     Dates: start: 20190829, end: 20190903
  3. PENIRAMIN [Concomitant]
     Indication: PNEUMONIA
     Dosage: 4 MILLIGRAM
     Route: 065
     Dates: start: 20190916, end: 20190916
  4. DUROGESIC D-TRANS [Concomitant]
     Active Substance: FENTANYL
     Indication: NEUROPATHY PERIPHERAL
     Dosage: 4.2 MILLIGRAM
     Route: 048
     Dates: start: 20190404, end: 20191122
  5. PERATAM [Concomitant]
     Indication: PNEUMONIA
     Dosage: 4 GRAM
     Route: 065
     Dates: start: 20190624, end: 20190809
  6. DEXAMETHASONE. [Suspect]
     Active Substance: DEXAMETHASONE
     Indication: PLASMA CELL MYELOMA
     Route: 048
     Dates: start: 20190801
  7. XYZAL [Concomitant]
     Active Substance: LEVOCETIRIZINE DIHYDROCHLORIDE
     Indication: HYPERSENSITIVITY
     Dosage: 5 MILLIGRAM
     Route: 048
     Dates: start: 20190124, end: 20190802
  8. DIACAMAX [Concomitant]
     Indication: MINERAL SUPPLEMENTATION
     Dosage: 1250 MG ,1000 IU
     Route: 048
     Dates: start: 20170920, end: 20191101
  9. CAROL-F [Concomitant]
     Indication: PNEUMONIA
     Dosage: 1106.7 MILLIGRAM
     Route: 048
     Dates: start: 20190718, end: 20190806
  10. SYNTHYROXINE [Concomitant]
     Active Substance: LEVOTHYROXINE SODIUM
     Indication: HYPOTHYROIDISM
     Dosage: 125 MICROGRAM
     Route: 048
     Dates: start: 20190628, end: 20191120
  11. PERIDOL [Concomitant]
     Active Substance: HALOPERIDOL
     Indication: DELIRIUM
     Dosage: .75 MILLIGRAM
     Route: 048
     Dates: start: 20190807, end: 20190813
  12. PERIDOL [Concomitant]
     Active Substance: HALOPERIDOL
     Dosage: 2.5 MILLIGRAM
     Route: 030
     Dates: start: 20191122, end: 20191122
  13. POMALIDOMIDE [Suspect]
     Active Substance: POMALIDOMIDE
     Route: 048
     Dates: end: 20191031
  14. HARNAL [Concomitant]
     Active Substance: TAMSULOSIN HYDROCHLORIDE
     Indication: DYSURIA
     Dosage: .2 MILLIGRAM
     Route: 048
     Dates: start: 20190723, end: 20191031
  15. PENIRAMIN [Concomitant]
     Indication: HYPERSENSITIVITY
     Dosage: 6 MILLIGRAM
     Route: 048
     Dates: start: 20190724, end: 20190806
  16. VFEND [Concomitant]
     Active Substance: VORICONAZOLE
     Indication: INFECTION
     Dosage: 400 MILLIGRAM
     Route: 048
     Dates: start: 20190627, end: 20191122
  17. SEROQUEL [Concomitant]
     Active Substance: QUETIAPINE FUMARATE
     Indication: DELIRIUM
     Dosage: 25 MILLIGRAM
     Route: 048
     Dates: start: 20190813, end: 20190820
  18. ELIQUIS [Concomitant]
     Active Substance: APIXABAN
     Indication: EMBOLISM
     Dosage: 10 MILLIGRAM
     Route: 048
     Dates: start: 20170923, end: 20191031
  19. NESP [Concomitant]
     Active Substance: DARBEPOETIN ALFA
     Indication: ANAEMIA
     Route: 065
     Dates: start: 20190926, end: 20190926
  20. NESP [Concomitant]
     Active Substance: DARBEPOETIN ALFA
     Indication: PNEUMONIA
     Route: 065
     Dates: start: 20191021, end: 20191021
  21. CYCLOPHOSPHAMIDE. [Suspect]
     Active Substance: CYCLOPHOSPHAMIDE
     Route: 048
     Dates: end: 20191031
  22. HINECHOL [Concomitant]
     Indication: DYSURIA
     Dosage: 75 MILLIGRAM
     Route: 048
     Dates: start: 20190723, end: 20191031
  23. KEPPRA [Concomitant]
     Active Substance: LEVETIRACETAM
     Indication: EPILEPSY
     Dosage: 1000 MILLIGRAM
     Route: 048
     Dates: start: 20190718, end: 20191122
  24. DEXAMETHASONE. [Suspect]
     Active Substance: DEXAMETHASONE
     Route: 048
     Dates: end: 20191031
  25. NEXIUM [Concomitant]
     Active Substance: ESOMEPRAZOLE MAGNESIUM
     Indication: GASTRITIS
     Dosage: 20 MILLIGRAM
     Route: 048
     Dates: start: 20120302, end: 20191120
  26. LEVOPLUS [Concomitant]
     Indication: PNEUMONIA
     Dosage: 750 MILLIGRAM
     Route: 048
     Dates: start: 20190708, end: 20190930
  27. DIABEX [Concomitant]
     Active Substance: METFORMIN HYDROCHLORIDE
     Indication: DIABETES MELLITUS
     Dosage: 500 MILLIGRAM
     Route: 048
     Dates: start: 20190701, end: 20190819
  28. IR CODON [Concomitant]
     Active Substance: OXYCODONE HYDROCHLORIDE
     Indication: NEUROPATHY PERIPHERAL
     Dosage: 30 MILLIGRAM
     Route: 048
     Dates: start: 20190714, end: 20191023
  29. DIACAMAX [Concomitant]
     Indication: VITAMIN SUPPLEMENTATION
  30. HEPARIN [Concomitant]
     Active Substance: HEPARIN SODIUM
     Indication: EMBOLISM
     Dosage: 1000 IU (INTERNATIONAL UNIT)
     Route: 065
     Dates: start: 20170916, end: 20190923
  31. NEUTROGIN [Concomitant]
     Active Substance: LENOGRASTIM
     Indication: NEUTROPHIL COUNT DECREASED
     Route: 065
     Dates: start: 20191021, end: 20191021
  32. CYCLOPHOSPHAMIDE. [Suspect]
     Active Substance: CYCLOPHOSPHAMIDE
     Indication: PLASMA CELL MYELOMA
     Route: 048
     Dates: start: 20190801, end: 20190903
  33. FRAGMIN [Concomitant]
     Active Substance: DALTEPARIN SODIUM
     Indication: EMBOLISM
     Dosage: 15000 IU (INTERNATIONAL UNIT)
     Route: 065
     Dates: start: 20190904, end: 20190923

REACTIONS (3)
  - Pneumonia [Fatal]
  - Diabetic ketoacidosis [Recovered/Resolved]
  - Pneumonia [Recovered/Resolved]

NARRATIVE: CASE EVENT DATE: 20190903
